FAERS Safety Report 7356185-0 (Version None)
Quarter: 2011Q1

REPORT INFORMATION
  Report Type: 
  Country: None (occurrence: None)
  Receive Date: 20110316
  Receipt Date: 20110310
  Transmission Date: 20110831
  Serious: Yes (Hospitalization, Other)
  Sender: FDA-Public Use
  Company Number: JP-PFIZER INC-2011037821

PATIENT
  Age: 36 Year
  Sex: Female

DRUGS (2)
  1. CABERGOLINE [Suspect]
     Indication: LACTATION PUERPERAL INCREASED
     Dosage: 1 MG, 1X/DAY
     Route: 048
     Dates: start: 20110221, end: 20110221
  2. XALATAN [Concomitant]
     Dosage: UNK
     Route: 047

REACTIONS (3)
  - NAUSEA [None]
  - DIZZINESS [None]
  - HEADACHE [None]
